FAERS Safety Report 7045940-2 (Version None)
Quarter: 2010Q4

REPORT INFORMATION
  Report Type: 
  Country: None (occurrence: None)
  Receive Date: 20101014
  Receipt Date: 20101006
  Transmission Date: 20110411
  Serious: Yes (Other)
  Sender: FDA-Public Use
  Company Number: US-PURDUE-USA-2010-0048795

PATIENT
  Sex: Female
  Weight: 65.76 kg

DRUGS (2)
  1. OXYCONTIN [Suspect]
     Indication: PAIN
     Dosage: UNK
     Dates: start: 20070101
  2. OXYCONTIN [Suspect]
     Dosage: UNK MG, UNK
     Dates: start: 20070101

REACTIONS (1)
  - CARDIAC PACEMAKER INSERTION [None]
